FAERS Safety Report 16145747 (Version 1)
Quarter: 2019Q2

REPORT INFORMATION
  Report Type: Spontaneous
  Country: US (occurrence: US)
  Receive Date: 20190401
  Receipt Date: 20190401
  Transmission Date: 20190711
  Serious: No
  Sender: FDA-Public Use
  Company Number: None

PATIENT
  Age: 24 Year
  Sex: Female
  Weight: 51.75 kg

DRUGS (2)
  1. SODIUM OXYBATE. [Suspect]
     Active Substance: SODIUM OXYBATE
  2. XYREM [Suspect]
     Active Substance: SODIUM OXYBATE
     Indication: NARCOLEPSY
     Dosage: ?          QUANTITY:2.25 GRAMS;OTHER FREQUENCY:TWICE A NIGHT;?
     Route: 048
     Dates: start: 20190321, end: 20190325

REACTIONS (10)
  - Feeling drunk [None]
  - Muscle spasms [None]
  - Pain in extremity [None]
  - Myalgia [None]
  - Cataplexy [None]
  - Hangover [None]
  - Chest pain [None]
  - Hyperhidrosis [None]
  - Discomfort [None]
  - Abdominal pain upper [None]

NARRATIVE: CASE EVENT DATE: 20190321
